FAERS Safety Report 4749674-6 (Version None)
Quarter: 2005Q3

REPORT INFORMATION
  Report Type: 
  Country: None (occurrence: None)
  Receive Date: 20050822
  Receipt Date: 20050811
  Transmission Date: 20060218
  Serious: Yes (Hospitalization, Disabling)
  Sender: FDA-Public Use
  Company Number: DE-ROCHE-413628

PATIENT
  Age: 53 Year
  Sex: Female
  Weight: 70 kg

DRUGS (7)
  1. CAPECITABINE [Suspect]
     Indication: BREAST CANCER
     Dosage: DOSING FREQUENCY: DAYS 1-14 IN A 3 WEEK CYCLE.
     Route: 065
     Dates: start: 20050608, end: 20050802
  2. TAXOL [Suspect]
     Indication: BREAST CANCER
     Route: 065
     Dates: start: 20050608, end: 20050805
  3. DARBEPOETIN ALFA [Concomitant]
     Dates: start: 20050413, end: 20050806
  4. FE [Concomitant]
     Dosage: FE 2+
     Dates: start: 20050413
  5. ANEMET [Concomitant]
     Dosage: FREQUENCY: 1 X
     Dates: start: 20050413, end: 20050805
  6. CLEMASTIN [Concomitant]
     Dosage: DOSE 1 AYZ. FREQUENCY: 1 X.
     Dates: start: 20050608, end: 20050805
  7. RANITIDINE HCL [Concomitant]
     Dosage: DOSE 1 AYS. FREQUENCY: 1 X.
     Dates: start: 20050608, end: 20050805

REACTIONS (5)
  - ABDOMINAL PAIN UPPER [None]
  - DIARRHOEA [None]
  - FATIGUE [None]
  - MUCOSAL INFLAMMATION [None]
  - PALMAR-PLANTAR ERYTHRODYSAESTHESIA SYNDROME [None]
